FAERS Safety Report 8187457-8 (Version None)
Quarter: 2012Q1

REPORT INFORMATION
  Report Type: 
  Country: None (occurrence: None)
  Receive Date: 20120306
  Receipt Date: 20120227
  Transmission Date: 20120608
  Serious: Yes (Other)
  Sender: FDA-Public Use
  Company Number: JP-PFIZER INC-2012042532

PATIENT
  Age: 62 Year
  Sex: Male
  Weight: 74.4 kg

DRUGS (8)
  1. LOSARTAN POTASSIUM [Concomitant]
     Dosage: 50 MG, 1X/DAY
     Route: 048
     Dates: start: 20111102
  2. URSO 250 [Concomitant]
     Dosage: 600 MG, UNK
     Dates: start: 20111102
  3. DUTASTERIDE [Concomitant]
     Dosage: 0.5 MG, 1X/DAY
     Dates: start: 20111102
  4. SLOW-K [Concomitant]
     Dosage: 1800 MG , 3 TABLET, 3X/DAY
     Dates: start: 20111130
  5. PROHEPARUM [Concomitant]
     Dosage: 6 DF, UNK
     Route: 048
     Dates: start: 20111102
  6. ALLEGRA [Concomitant]
     Indication: PROPHYLAXIS
     Dosage: 60 MG, WEEKLY
     Route: 048
     Dates: start: 20111004
  7. URIEF [Concomitant]
     Dosage: 8 MG, UNK
     Route: 048
     Dates: start: 20111102
  8. TEMSIROLIMUS [Suspect]
     Indication: METASTATIC RENAL CELL CARCINOMA
     Dosage: 25 MG, WEEKLY
     Route: 042
     Dates: start: 20111004, end: 20111221

REACTIONS (3)
  - DIABETES MELLITUS [None]
  - INTERSTITIAL LUNG DISEASE [None]
  - HYPOKALAEMIA [None]
